FAERS Safety Report 6158531-2 (Version None)
Quarter: 2009Q2

REPORT INFORMATION
  Report Type: 
  Country: None (occurrence: None)
  Receive Date: 20090417
  Receipt Date: 20090414
  Transmission Date: 20091009
  Serious: Yes (Hospitalization)
  Sender: FDA-Public Use
  Company Number: US-B.I. PHARMACEUTICALS,INC./RIDGEFIELD-2009-BP-04671BP

PATIENT
  Sex: Male

DRUGS (1)
  1. AGGRENOX [Suspect]
     Indication: CEREBROVASCULAR ACCIDENT PROPHYLAXIS
     Dosage: 2ANZ
     Route: 048
     Dates: start: 20090326, end: 20090327

REACTIONS (4)
  - HEART RATE INCREASED [None]
  - PRURITUS [None]
  - RASH GENERALISED [None]
  - URTICARIA [None]
